FAERS Safety Report 7099997-3 (Version None)
Quarter: 2010Q4

REPORT INFORMATION
  Report Type: 
  Country: None (occurrence: None)
  Receive Date: 20101112
  Receipt Date: 20101104
  Transmission Date: 20110411
  Serious: Yes (Other)
  Sender: FDA-Public Use
  Company Number: US-PURDUE-USA-2010-0052285

PATIENT

DRUGS (1)
  1. OXYCONTIN [Suspect]
     Indication: PAIN
     Dosage: UNK

REACTIONS (8)
  - ABDOMINAL PAIN UPPER [None]
  - DRUG EFFECT DELAYED [None]
  - DRUG INEFFECTIVE [None]
  - DYSPNOEA [None]
  - FOREIGN BODY [None]
  - HEADACHE [None]
  - NAUSEA [None]
  - PRODUCT SIZE ISSUE [None]
